FAERS Safety Report 19955260 (Version 1)
Quarter: 2021Q4

REPORT INFORMATION
  Report Type: Spontaneous
  Country: FR (occurrence: FR)
  Receive Date: 20211013
  Receipt Date: 20211013
  Transmission Date: 20220303
  Serious: Yes (Hospitalization)
  Sender: FDA-Public Use
  Company Number: FR-ANIPHARMA-2021-FR-000212

PATIENT
  Age: 73 Year
  Sex: Female

DRUGS (10)
  1. ATACAND [Suspect]
     Active Substance: CANDESARTAN CILEXETIL
     Indication: Hypertension
     Dosage: 120 MG DAILY
     Route: 048
     Dates: end: 20210824
  2. GLICLAZIDE [Suspect]
     Active Substance: GLICLAZIDE
     Dosage: 120 MG DAILY
     Route: 048
     Dates: end: 20210824
  3. ESOMEPRAZOLE [Suspect]
     Active Substance: ESOMEPRAZOLE
     Dosage: 20 MG DAILY
     Route: 048
     Dates: end: 20210822
  4. PRAVASTATIN [Suspect]
     Active Substance: PRAVASTATIN
     Dosage: 40 MG DAILY
     Route: 048
     Dates: end: 20210903
  5. VERAPAMIL HYDROCHLORIDE [Suspect]
     Active Substance: VERAPAMIL HYDROCHLORIDE
     Dosage: 240 MG DAILY
     Route: 048
     Dates: end: 20210824
  6. LORMETAZEPAM [Suspect]
     Active Substance: LORMETAZEPAM
     Dosage: 2 DF DAILY
     Route: 048
     Dates: end: 20210822
  7. VALACYCLOVIR HYDROCHLORIDE [Suspect]
     Active Substance: VALACYCLOVIR HYDROCHLORIDE
     Dosage: UNKNOWN DOSE + FREQUENCY
     Route: 048
     Dates: start: 20210818, end: 20210823
  8. BACTRIM [Suspect]
     Active Substance: SULFAMETHOXAZOLE\TRIMETHOPRIM
     Dosage: UNKNOWN DOSE + FREQUENCY
     Route: 048
     Dates: start: 20210818, end: 20210823
  9. AZACITIDINE [Suspect]
     Active Substance: AZACITIDINE
     Dosage: 1 DF ONCE
     Route: 050
     Dates: start: 20210818, end: 20210822
  10. GLUCOPHAGE [Suspect]
     Active Substance: METFORMIN HYDROCHLORIDE
     Dosage: 2.5 G UNK
     Route: 048
     Dates: end: 20210823

REACTIONS (3)
  - Cholestatic liver injury [Recovered/Resolved]
  - Renal tubular disorder [Recovering/Resolving]
  - Off label use [Recovered/Resolved]

NARRATIVE: CASE EVENT DATE: 20210821
